FAERS Safety Report 14053443 (Version 1)
Quarter: 2017Q4

REPORT INFORMATION
  Report Type: Spontaneous
  Country: US (occurrence: US)
  Receive Date: 20171005
  Receipt Date: 20171005
  Transmission Date: 20180321
  Serious: No
  Sender: FDA-Public Use
  Company Number: US-ARBOR PHARMACEUTICALS, LLC-US-2017ARB000411

PATIENT
  Age: 13 Year
  Sex: Female

DRUGS (1)
  1. EVEKEO [Suspect]
     Active Substance: AMPHETAMINE SULFATE
     Indication: PRODUCT USED FOR UNKNOWN INDICATION
     Dosage: 1 DF, SINGLE

REACTIONS (5)
  - Muscle twitching [Unknown]
  - Gait inability [Unknown]
  - Speech disorder [Unknown]
  - Tic [Unknown]
  - Heart rate increased [Unknown]
